FAERS Safety Report 16899323 (Version 1)
Quarter: 2019Q4

REPORT INFORMATION
  Report Type: Spontaneous
  Country: US (occurrence: US)
  Receive Date: 20191008
  Receipt Date: 20191008
  Transmission Date: 20200122
  Serious: Yes (Other)
  Sender: FDA-Public Use
  Company Number: None

PATIENT
  Age: 38 Year
  Sex: Female

DRUGS (1)
  1. BUPRENORPHINE/NALOXONE TABLETS [Suspect]
     Active Substance: BUPRENORPHINE\NALOXONE
     Indication: DRUG DEPENDENCE
     Route: 060
     Dates: start: 20190829

REACTIONS (5)
  - Therapeutic product effect incomplete [None]
  - Retching [None]
  - Product dosage form issue [None]
  - Aptyalism [None]
  - Drug dependence [None]

NARRATIVE: CASE EVENT DATE: 20190829
